FAERS Safety Report 5245096-2 (Version None)
Quarter: 2007Q1

REPORT INFORMATION
  Report Type: 
  Country: None (occurrence: None)
  Receive Date: 20070223
  Receipt Date: 20070216
  Transmission Date: 20070707
  Serious: Yes (Other)
  Sender: FDA-Public Use
  Company Number: DE-AVENTIS-200710442DE

PATIENT
  Sex: Male

DRUGS (1)
  1. CLEXANE [Suspect]
     Dosage: DOSE: NOT REPORTED
     Route: 058
     Dates: start: 20070101

REACTIONS (3)
  - BLOOD POTASSIUM INCREASED [None]
  - FATIGUE [None]
  - MYALGIA [None]
